FAERS Safety Report 5958176-0 (Version None)
Quarter: 2008Q4

REPORT INFORMATION
  Report Type: 
  Country: None (occurrence: None)
  Receive Date: 20081114
  Receipt Date: 20081114
  Transmission Date: 20090506
  Serious: Yes (Hospitalization)
  Sender: FDA-Public Use
  Company Number: None

PATIENT
  Sex: Male
  Weight: 104.3273 kg

DRUGS (7)
  1. DICLOFENAC SODIUM [Suspect]
     Indication: ARTHRITIS
     Dosage: 75 MG ONCE DAILY PO
     Route: 048
  2. LISINOPRIL AND HYDROCHLOROTHIAZIDE [Suspect]
     Indication: HYPERTENSION
     Dosage: 10/12.5 MG ONCE DAILY PO
     Route: 048
  3. . [Concomitant]
  4. PRAVASTATIN [Concomitant]
  5. LANTUS [Concomitant]
  6. NOLVOLOG [Concomitant]
  7. JANUVIA [Concomitant]

REACTIONS (1)
  - HEPATIC ENZYME INCREASED [None]
